FAERS Safety Report 15271410 (Version 1)
Quarter: 2018Q3

REPORT INFORMATION
  Report Type: Spontaneous
  Country: US (occurrence: US)
  Receive Date: 20180727
  Receipt Date: 20180727
  Transmission Date: 20181010
  Serious: Yes (Other)
  Sender: FDA-Public Use
  Company Number: None

PATIENT
  Age: 57 Year
  Sex: Female
  Weight: 78.6 kg

DRUGS (1)
  1. RITUXAN [Suspect]
     Active Substance: RITUXIMAB
     Indication: PEMPHIGUS
     Route: 042
     Dates: start: 20140430, end: 20180718

REACTIONS (4)
  - Pruritus [None]
  - Throat irritation [None]
  - Therapy change [None]
  - Nasal congestion [None]

NARRATIVE: CASE EVENT DATE: 20180718
